FAERS Safety Report 21058208 (Version 5)
Quarter: 2023Q2

REPORT INFORMATION
  Report Type: Report from Study
  Country: US (occurrence: US)
  Receive Date: 20220708
  Receipt Date: 20230623
  Transmission Date: 20230722
  Serious: Yes (Other)
  Sender: FDA-Public Use
  Company Number: US-NOVARTISPH-NVSC2022US153781

PATIENT
  Sex: Female

DRUGS (1)
  1. COSENTYX [Suspect]
     Active Substance: SECUKINUMAB
     Indication: Psoriatic arthropathy
     Dosage: 150 MG, QMO (EVERY FOUR WEEKS)
     Route: 058

REACTIONS (4)
  - Facial bones fracture [Recovered/Resolved]
  - Arthralgia [Unknown]
  - Fall [Unknown]
  - Upper respiratory tract infection [Recovered/Resolved]
